FAERS Safety Report 4490125-7 (Version None)
Quarter: 2004Q4

REPORT INFORMATION
  Report Type: 
  Country: None (occurrence: None)
  Receive Date: 20041028
  Receipt Date: 20041022
  Transmission Date: 20050328
  Serious: Yes (Hospitalization)
  Sender: FDA-Public Use
  Company Number: 2004226091US

PATIENT
  Age: 29 Year
  Sex: Male
  Weight: 88 kg

DRUGS (3)
  1. ZYVOX [Suspect]
     Indication: CELLULITIS STAPHYLOCOCCAL
     Dates: start: 20040605, end: 20040615
  2. DILAUDID [Suspect]
     Indication: PAIN
     Dosage: ORAL
     Route: 048
     Dates: start: 20040526, end: 20040615
  3. ACETAMINOPHEN AND HYDROCODONE BITARTRATE [Concomitant]

REACTIONS (8)
  - ACCIDENT [None]
  - BLISTER [None]
  - INFECTION [None]
  - JOINT SPRAIN [None]
  - JOINT SWELLING [None]
  - OEDEMA PERIPHERAL [None]
  - PAIN EXACERBATED [None]
  - RASH [None]
